FAERS Safety Report 9254067 (Version 2)
Quarter: 2013Q4

REPORT INFORMATION
  Report Type: Spontaneous
  Country: FR (occurrence: None)
  Receive Date: 20130419
  Receipt Date: 20131004
  Transmission Date: 20140711
  Serious: Yes (Life-Threatening, Hospitalization)
  Sender: FDA-Public Use
  Company Number: 1669930

PATIENT
  Age: 55 Year
  Sex: Female

DRUGS (6)
  1. ATRACURIUM BESILATE [Suspect]
     Indication: PRODUCT USED FOR UNKNOWN INDICATION
     Route: 042
     Dates: start: 20130201
  2. SUFENTANIL [Suspect]
     Indication: GENERAL ANAESTHESIA
     Route: 042
     Dates: start: 20130201
  3. PROPOFOL [Suspect]
     Indication: GENERAL ANAESTHESIA
     Dosage: ?
     Route: 042
     Dates: start: 20130201
  4. KETAMINE [Suspect]
     Indication: GENERAL ANAESTHESIA
     Route: 042
     Dates: start: 20130201
  5. CEFAZOLINE PANPHARMA [Suspect]
     Indication: GENERAL ANAESTHESIA
     Dosage: 2 G GRAM(S), UNKNOWN, INTRAVENOUS (NOT OTHERWISE SPECIFIED)?
     Route: 042
  6. DEXAMETHASONE [Concomitant]
     Indication: GENERAL ANAESTHESIA
     Route: 042
     Dates: start: 20130201

REACTIONS (1)
  - Circulatory collapse [None]
